FAERS Safety Report 20073347 (Version 3)
Quarter: 2023Q4

REPORT INFORMATION
  Report Type: Spontaneous
  Country: FR (occurrence: FR)
  Receive Date: 20211116
  Receipt Date: 20231114
  Transmission Date: 20240110
  Serious: Yes (Other)
  Sender: FDA-Public Use
  Company Number: FR-JNJFOC-20211059904

PATIENT
  Age: 59 Year
  Sex: Female

DRUGS (5)
  1. DEXAMETHASONE [Suspect]
     Active Substance: DEXAMETHASONE
     Indication: Plasma cell myeloma
     Dosage: 2 DOSE(S)/WEEK, 2 WEEK(S)/CYCLE. TREATMENT DURATION: 14.6 MONTHS.
     Route: 065
     Dates: start: 2018, end: 20190129
  2. LENALIDOMIDE [Suspect]
     Active Substance: LENALIDOMIDE
     Indication: Plasma cell myeloma
     Dosage: 7 DOSES/WEEK, 2 WEEK(S)/ CYCLE. TREATMENT DURATION: 14.6 MONTHS.
     Route: 065
     Dates: start: 2018, end: 20190129
  3. LENALIDOMIDE [Suspect]
     Active Substance: LENALIDOMIDE
     Dosage: MAINTENANCE: LENALIDOMIDE 10 MG/DOSE 7 DOSE(S)/WEEK 3 WEEK(S))/CYCLE
     Route: 065
  4. MELPHALAN [Suspect]
     Active Substance: MELPHALAN
     Indication: Plasma cell myeloma
     Dosage: 1 WEEK PER CYCLE. TREATMENT DURATION: 14.6 MONTHS.
     Route: 065
     Dates: start: 2018, end: 20190129
  5. VELCADE [Suspect]
     Active Substance: BORTEZOMIB
     Indication: Plasma cell myeloma
     Dosage: 2 DOSES/WEEK, 2 WEEK(S)/ CYCLE. TREATMENT DURATION: 14.6 MONTHS.
     Route: 065
     Dates: start: 2018, end: 20190129

REACTIONS (5)
  - Atrial fibrillation [Unknown]
  - Plasma cell myeloma [Unknown]
  - Diarrhoea [Unknown]
  - Off label use [Unknown]
  - Intentional product use issue [Unknown]

NARRATIVE: CASE EVENT DATE: 20220101
